FAERS Safety Report 6817627-X (Version None)
Quarter: 2010Q3

REPORT INFORMATION
  Report Type: 
  Country: None (occurrence: None)
  Receive Date: 20100706
  Receipt Date: 20100622
  Transmission Date: 20110219
  Serious: Yes (Hospitalization)
  Sender: FDA-Public Use
  Company Number: JP-SANOFI-AVENTIS-2010SA032304

PATIENT
  Age: 60 Year
  Sex: Female
  Weight: 50 kg

DRUGS (19)
  1. ARAVA [Suspect]
     Indication: RHEUMATOID ARTHRITIS
     Route: 048
     Dates: start: 20050422, end: 20050601
  2. ARAVA [Suspect]
     Route: 048
     Dates: start: 20050602
  3. ARAVA [Suspect]
     Route: 048
     Dates: end: 20100326
  4. PLETAL [Concomitant]
  5. DIDRONEL [Concomitant]
  6. AMLODIPINE [Concomitant]
  7. UBRETID [Concomitant]
  8. PAXIL [Concomitant]
  9. TOLEDOMIN [Concomitant]
  10. CONTOMIN [Concomitant]
  11. FLUNITRAZEPAM [Concomitant]
  12. ARTANE [Concomitant]
  13. DOGMATYL [Concomitant]
  14. FERROMIA [Concomitant]
  15. SLOW-K [Concomitant]
  16. EBRANTIL [Concomitant]
  17. OMEPRAZOLE [Concomitant]
  18. PREDNISOLONE [Concomitant]
  19. METHYCOBAL [Concomitant]

REACTIONS (1)
  - CYSTITIS HAEMORRHAGIC [None]
